FAERS Safety Report 20046719 (Version 2)
Quarter: 2021Q4

REPORT INFORMATION
  Report Type: Report from Study
  Country: US (occurrence: None)
  Receive Date: 20211109
  Receipt Date: 20211215
  Transmission Date: 20220303
  Serious: Yes (Other)
  Sender: FDA-Public Use
  Company Number: US-Merck Healthcare KGaA-9277451

PATIENT
  Age: 55 Year
  Sex: Female

DRUGS (1)
  1. REBIF [Suspect]
     Active Substance: INTERFERON BETA-1A
     Indication: Multiple sclerosis
     Route: 058
     Dates: start: 20170512

REACTIONS (4)
  - Intervertebral disc operation [Recovered/Resolved]
  - Diabetes mellitus [Unknown]
  - Neuropathy peripheral [Unknown]
  - Sensory loss [Unknown]

NARRATIVE: CASE EVENT DATE: 20210501
